FAERS Safety Report 7960837-9 (Version None)
Quarter: 2011Q4

REPORT INFORMATION
  Report Type: 
  Country: None (occurrence: None)
  Receive Date: 20111207
  Receipt Date: 20111130
  Transmission Date: 20120403
  Serious: No
  Sender: FDA-Public Use
  Company Number: US-BIOGENIDEC-2011BI045509

PATIENT
  Sex: Male

DRUGS (1)
  1. AVONEX [Suspect]
     Indication: MULTIPLE SCLEROSIS
     Route: 030

REACTIONS (8)
  - FALL [None]
  - VERTIGO [None]
  - BALANCE DISORDER [None]
  - PERONEAL NERVE PALSY [None]
  - SECONDARY PROGRESSIVE MULTIPLE SCLEROSIS [None]
  - GAIT DISTURBANCE [None]
  - VISUAL IMPAIRMENT [None]
  - MULTIPLE SCLEROSIS RELAPSE [None]
